FAERS Safety Report 5596084-8 (Version None)
Quarter: 2008Q1

REPORT INFORMATION
  Report Type: 
  Country: None (occurrence: None)
  Receive Date: 20080118
  Receipt Date: 20080112
  Transmission Date: 20080703
  Serious: Yes (Other)
  Sender: FDA-Public Use
  Company Number: GB-ROCHE-541007

PATIENT
  Age: 62 Year
  Sex: Female
  Weight: 118 kg

DRUGS (6)
  1. ORLISTAT [Suspect]
     Indication: OBESITY
     Route: 048
     Dates: start: 20070707
  2. 1 CONCOMITANT DRUG [Concomitant]
     Dosage: DRUG NAME: BENZOFLOURIDE. HAD BEEN TAKING FOR LONG TERM.
     Route: 048
  3. ATENOLOL [Concomitant]
     Dosage: HAD BEEN TAKING FOR LONG TERM.
     Route: 048
  4. AMLODIPINE [Concomitant]
     Dosage: HAD BEEN TAKING FOR LONG TERM. DRUG NAME: AMLODAPINE.
     Route: 048
  5. ASPIRIN [Concomitant]
     Dosage: HAD BEEN TAKING FOR LONG TERM.
     Route: 048
  6. SIMVASTATIN [Concomitant]
     Dosage: HAD BEEN TAKING FOR LONG TERM.
     Route: 048

REACTIONS (1)
  - ANGINA PECTORIS [None]
